FAERS Safety Report 6741949-4 (Version None)
Quarter: 2010Q2

REPORT INFORMATION
  Report Type: 
  Country: None (occurrence: None)
  Receive Date: 20100526
  Receipt Date: 20100518
  Transmission Date: 20101027
  Serious: Yes (Other)
  Sender: FDA-Public Use
  Company Number: D0056445A

PATIENT
  Age: 73 Year
  Sex: Female

DRUGS (3)
  1. AVANDAMET [Suspect]
     Indication: DIABETES MELLITUS
     Route: 065
     Dates: start: 20050101
  2. LYRICA [Concomitant]
     Route: 065
  3. BRISERIN [Concomitant]
     Route: 065

REACTIONS (10)
  - ARTHROPATHY [None]
  - BALANCE DISORDER [None]
  - DYSPNOEA [None]
  - FALL [None]
  - FOOT FRACTURE [None]
  - FOREARM FRACTURE [None]
  - RADIUS FRACTURE [None]
  - ULNA FRACTURE [None]
  - WEIGHT INCREASED [None]
  - WRIST FRACTURE [None]
